FAERS Safety Report 23821170 (Version 2)
Quarter: 2024Q4

REPORT INFORMATION
  Report Type: Report from Study
  Country: US (occurrence: US)
  Receive Date: 20240506
  Receipt Date: 20241123
  Transmission Date: 20250115
  Serious: Yes (Hospitalization, Other)
  Sender: ABBVIE
  Company Number: US-ABBVIE-5743163

PATIENT
  Age: 36 Year
  Sex: Male

DRUGS (1)
  1. SKYRIZI [Suspect]
     Active Substance: RISANKIZUMAB-RZAA
     Indication: Psoriasis
     Route: 058
     Dates: start: 20210120

REACTIONS (6)
  - Scar [Unknown]
  - Psoriasis [Unknown]
  - Small intestinal obstruction [Unknown]
  - Unevaluable event [Unknown]
  - Adhesion [Unknown]
  - Stress [Unknown]

NARRATIVE: CASE EVENT DATE: 20240301
